FAERS Safety Report 13642595 (Version 1)
Quarter: 2017Q2

REPORT INFORMATION
  Report Type: Spontaneous
  Country: US (occurrence: US)
  Receive Date: 20170612
  Receipt Date: 20170612
  Transmission Date: 20170830
  Serious: No
  Sender: FDA-Public Use
  Company Number: US-SEPTODONT-201603628

PATIENT
  Age: 54 Year
  Sex: Female

DRUGS (3)
  1. SEPTOCAINE AND EPINEPHRINE [Suspect]
     Active Substance: ARTICAINE HYDROCHLORIDE\EPINEPHRINE BITARTRATE
     Indication: LOCAL ANAESTHESIA
     Dosage: 6.8 ML TOTAL OF BOTH DRUG #1 AND DRUG #2 ADMINISTERED. 28G HENRY SCHEIN NEEDLE
     Route: 004
     Dates: start: 20160831, end: 20160831
  2. SEPTOCAINE AND EPINEPHRINE [Suspect]
     Active Substance: ARTICAINE HYDROCHLORIDE\EPINEPHRINE BITARTRATE
     Indication: LOCAL ANAESTHESIA
     Dosage: 6.8 ML TOTAL OF BOTH DRUG #1 AND DRUG #2 ADMINISTERED. 28G HENRY SCHEIN NEEDLE
     Route: 004
     Dates: start: 20160831, end: 20160831
  3. BENZOCAINE. [Concomitant]
     Active Substance: BENZOCAINE
     Dates: start: 20160831, end: 20160831

REACTIONS (1)
  - Drug ineffective [Recovered/Resolved]

NARRATIVE: CASE EVENT DATE: 20160831
